FAERS Safety Report 9717224 (Version 1)
Quarter: 2013Q4

REPORT INFORMATION
  Report Type: Spontaneous
  Country: FR (occurrence: FR)
  Receive Date: 20131127
  Receipt Date: 20131127
  Transmission Date: 20140711
  Serious: Yes (Hospitalization)
  Sender: FDA-Public Use
  Company Number: FR-PFIZER INC-2013333679

PATIENT
  Age: 68 Year
  Sex: Male

DRUGS (8)
  1. TAHOR [Suspect]
     Indication: ISCHAEMIC STROKE
     Dosage: 1 DF, DAILY (40 MG)
     Route: 048
     Dates: start: 20131014
  2. PERINDOPRIL [Suspect]
     Dosage: 2 MG, DAILY
     Route: 048
     Dates: start: 20131015, end: 20131021
  3. LYRICA [Suspect]
     Indication: NEUROPATHY PERIPHERAL
     Dosage: 1 DF, 2X/DAY (50 MG)
     Route: 048
     Dates: start: 20131014
  4. BACTRIM [Suspect]
     Indication: BACTERIAL PYELONEPHRITIS
     Dosage: 2 DF, 2X/DAY
     Route: 042
     Dates: start: 20131011, end: 20131024
  5. LOVENOX [Suspect]
     Indication: THROMBOSIS PROPHYLAXIS
     Dosage: 0.4 ML, DAILY
     Route: 058
     Dates: start: 20131003
  6. KARDEGIC [Suspect]
     Indication: ISCHAEMIC STROKE
     Dosage: 1 DF, DAILY (160 MG)
     Route: 048
     Dates: start: 20131014
  7. PERFALGAN [Suspect]
     Dosage: 100 ML, 4X/DAY
     Route: 042
     Dates: start: 20131009
  8. TOBREX [Suspect]
     Dosage: 1 DF, 3X/DAY
     Route: 047
     Dates: start: 20131017

REACTIONS (1)
  - Drug reaction with eosinophilia and systemic symptoms [Unknown]
